FAERS Safety Report 15634749 (Version 1)
Quarter: 2018Q4

REPORT INFORMATION
  Report Type: Spontaneous
  Country: PL (occurrence: PL)
  Receive Date: 20181119
  Receipt Date: 20181119
  Transmission Date: 20190205
  Serious: Yes (Death)
  Sender: FDA-Public Use
  Company Number: PHHY2018PL157959

PATIENT

DRUGS (1)
  1. EVEROLIMUS. [Suspect]
     Active Substance: EVEROLIMUS
     Indication: LUNG NEOPLASM
     Route: 065

REACTIONS (2)
  - Cardiovascular insufficiency [Fatal]
  - Metastases to heart [Fatal]
